FAERS Safety Report 14731550 (Version 8)
Quarter: 2018Q2

REPORT INFORMATION
  Report Type: Spontaneous
  Country: PL (occurrence: PL)
  Receive Date: 20180407
  Receipt Date: 20180524
  Transmission Date: 20180711
  Serious: Yes (Hospitalization)
  Sender: FDA-Public Use
  Company Number: PL-AUROBINDO-AUR-APL-2018-018420

PATIENT
  Age: 17 Year
  Sex: Female

DRUGS (10)
  1. PARACETAMOL [Suspect]
     Active Substance: ACETAMINOPHEN
     Indication: PAIN
     Dosage: 500 MG, TID
     Route: 048
  2. DICLOFENAC [Suspect]
     Active Substance: DICLOFENAC
     Indication: BACK PAIN
     Dosage: 50 MILLIGRAM,AS NECESSARY
     Route: 065
  3. KETOPROFEN. [Suspect]
     Active Substance: KETOPROFEN
     Indication: INJURY
     Dosage: 100 MG, BID
     Route: 065
  4. PARACETAMOL [Suspect]
     Active Substance: ACETAMINOPHEN
     Dosage: 500 MG, TID
     Route: 048
  5. PARACETAMOL [Suspect]
     Active Substance: ACETAMINOPHEN
     Dosage: ()
  6. DICLOFENAC [Suspect]
     Active Substance: DICLOFENAC
     Indication: PAIN
  7. PARACETAMOL [Suspect]
     Active Substance: ACETAMINOPHEN
     Indication: BACK PAIN
     Dosage: 1500 MILLIGRAM, ONCE A DAY
     Route: 048
  8. KETOPROFEN. [Suspect]
     Active Substance: KETOPROFEN
     Indication: BACK PAIN
     Dosage: ()
  9. KETONAL                            /00321701/ [Suspect]
     Active Substance: KETOPROFEN
     Indication: PAIN
     Dosage: 200 MG, QD
     Route: 065
  10. PARACETAMOL [Suspect]
     Active Substance: ACETAMINOPHEN
     Indication: INJURY
     Dosage: 500 MG, TID
     Route: 048

REACTIONS (2)
  - Staphylococcal sepsis [Recovering/Resolving]
  - Acute kidney injury [Recovered/Resolved]
